FAERS Safety Report 5024748-3 (Version None)
Quarter: 2006Q2

REPORT INFORMATION
  Report Type: 
  Country: None (occurrence: None)
  Receive Date: 20060613
  Receipt Date: 20060608
  Transmission Date: 20061013
  Serious: Yes (Hospitalization)
  Sender: FDA-Public Use
  Company Number: US-MERCK-0606USA01656

PATIENT
  Sex: Male

DRUGS (1)
  1. HYZAAR [Suspect]
     Route: 048
     Dates: end: 20060601

REACTIONS (1)
  - CARDIAC FAILURE CONGESTIVE [None]
